FAERS Safety Report 17703060 (Version 2)
Quarter: 2020Q2

REPORT INFORMATION
  Report Type: Spontaneous
  Country: US (occurrence: US)
  Receive Date: 20200423
  Receipt Date: 20200518
  Transmission Date: 20200714
  Serious: Yes (Hospitalization)
  Sender: FDA-Public Use
  Company Number: US-VIFOR (INTERNATIONAL) INC.-VIT-2020-05471

PATIENT
  Age: 80 Year
  Sex: Male
  Weight: 72.19 kg

DRUGS (2)
  1. VELTASSA [Suspect]
     Active Substance: PATIROMER
     Indication: HYPERKALAEMIA
     Dates: start: 2019
  2. VELTASSA [Suspect]
     Active Substance: PATIROMER
     Route: 048
     Dates: start: 2019

REACTIONS (3)
  - Pneumonia [Unknown]
  - Weight decreased [Unknown]
  - Influenza [Unknown]

NARRATIVE: CASE EVENT DATE: 202002
